FAERS Safety Report 6820701-5 (Version None)
Quarter: 2010Q3

REPORT INFORMATION
  Report Type: 
  Country: None (occurrence: None)
  Receive Date: 20100707
  Receipt Date: 20100629
  Transmission Date: 20110219
  Serious: Yes (Hospitalization, Other)
  Sender: FDA-Public Use
  Company Number: US-GENENTECH-302055

PATIENT
  Sex: Female
  Weight: 63.946 kg

DRUGS (1)
  1. RITUXAN [Suspect]
     Indication: WEGENER'S GRANULOMATOSIS
     Dosage: UNK
     Route: 042
     Dates: start: 20050101

REACTIONS (5)
  - DERMATITIS ALLERGIC [None]
  - HEADACHE [None]
  - LUNG INFECTION [None]
  - MYCOBACTERIUM AVIUM COMPLEX INFECTION [None]
  - PNEUMONIA [None]
